FAERS Safety Report 6355330-3 (Version None)
Quarter: 2009Q3

REPORT INFORMATION
  Report Type: 
  Country: None (occurrence: None)
  Receive Date: 20090914
  Receipt Date: 20090901
  Transmission Date: 20100115
  Serious: Yes (Hospitalization, Other)
  Sender: FDA-Public Use
  Company Number: PHHY2009FI37586

PATIENT
  Age: 55 Year
  Sex: Male

DRUGS (16)
  1. LEPONEX [Suspect]
     Indication: SCHIZOPHRENIA
     Dosage: 2 + 3 + 3 TABLETS PER DAY
  2. LEPONEX [Suspect]
     Dosage: 600 MG/DAY
  3. LEPONEX [Suspect]
     Dosage: 500 MG PER DAY
  4. CIPROFLAXACIN [Suspect]
     Dosage: 1 DF, BID
  5. PRIMASPAN [Concomitant]
     Dosage: ONE TABLET A DAY
  6. CRAMPITON [Concomitant]
     Dosage: ONE TO TWO TABLETS A DAY
  7. COLONSOFT [Concomitant]
     Dosage: ONE DOSE TWO TIMES A DAY
  8. MALVITONA [Concomitant]
     Dosage: 30 ML A DAY
  9. SPIRIVA [Concomitant]
     Dosage: ONE DOSE A DAY
  10. SERETIDE EVOHALER [Concomitant]
     Dosage: ONE DOSE TWO TIMES A DAY
  11. SEREVENT [Concomitant]
     Dosage: 1 DOSE A DAY
  12. BRICANYL [Concomitant]
     Dosage: UNK
  13. PREDNISOLONE [Concomitant]
     Dosage: 1-2 TABLETS A DAY AS COURSES
  14. ANTIBIOTICS [Concomitant]
     Indication: RESPIRATORY TRACT INFECTION
  15. CEPHALEXIN [Concomitant]
     Dosage: FIVE TIMES
  16. DOXYCYCLINE [Concomitant]
     Dosage: FOR FOUR TIMES

REACTIONS (11)
  - ACTIVITIES OF DAILY LIVING IMPAIRED [None]
  - ANTIPSYCHOTIC DRUG LEVEL INCREASED [None]
  - ASTHENIA [None]
  - CONDITION AGGRAVATED [None]
  - CONFUSIONAL STATE [None]
  - DISCOMFORT [None]
  - DISORIENTATION [None]
  - FATIGUE [None]
  - GENERAL PHYSICAL HEALTH DETERIORATION [None]
  - PYREXIA [None]
  - RESPIRATORY TRACT INFECTION [None]
